FAERS Safety Report 18991163 (Version 1)
Quarter: 2021Q1

REPORT INFORMATION
  Report Type: Spontaneous
  Country: IT (occurrence: IT)
  Receive Date: 20210310
  Receipt Date: 20210310
  Transmission Date: 20210420
  Serious: Yes (Other)
  Sender: FDA-Public Use
  Company Number: IT-REGENERON PHARMACEUTICALS, INC.-2021-29928

PATIENT

DRUGS (2)
  1. TRAJENTA [Concomitant]
     Active Substance: LINAGLIPTIN
     Indication: TYPE 2 DIABETES MELLITUS
     Dosage: UNK
     Route: 048
  2. PRALUENT [Suspect]
     Active Substance: ALIROCUMAB
     Indication: HYPERCHOLESTEROLAEMIA
     Dosage: UNK
     Route: 058
     Dates: start: 20200730, end: 20201201

REACTIONS (1)
  - Alopecia universalis [Recovering/Resolving]

NARRATIVE: CASE EVENT DATE: 20201101
